FAERS Safety Report 22638532 (Version 1)
Quarter: 2023Q2

REPORT INFORMATION
  Report Type: Spontaneous
  Country: US (occurrence: US)
  Receive Date: 20230626
  Receipt Date: 20230626
  Transmission Date: 20230722
  Serious: Yes (Other)
  Sender: FDA-Public Use
  Company Number: US-002147023-NVSC2023US142611

PATIENT
  Sex: Female

DRUGS (3)
  1. FEMARA [Suspect]
     Active Substance: LETROZOLE
     Indication: Intraductal proliferative breast lesion
     Dosage: UNK
     Route: 065
     Dates: start: 2005
  2. FEMARA [Suspect]
     Active Substance: LETROZOLE
     Dosage: UNK
     Route: 065
     Dates: start: 201906
  3. IBRANCE [Suspect]
     Active Substance: PALBOCICLIB
     Indication: Product used for unknown indication
     Dosage: 100 MG
     Route: 065
     Dates: start: 201906, end: 202004

REACTIONS (5)
  - Sarcoma [Unknown]
  - Intraductal proliferative breast lesion [Unknown]
  - Malignant neoplasm progression [Unknown]
  - Breast mass [Unknown]
  - Erythema [Unknown]

NARRATIVE: CASE EVENT DATE: 20110101
